FAERS Safety Report 10919624 (Version 2)
Quarter: 2015Q2

REPORT INFORMATION
  Report Type: Spontaneous
  Country: US (occurrence: US)
  Receive Date: 20150317
  Receipt Date: 20150526
  Transmission Date: 20150821
  Serious: No
  Sender: FDA-Public Use
  Company Number: US-JNJFOC-20140506415

PATIENT

DRUGS (2)
  1. CORTICOSTEROID [Interacting]
     Active Substance: CORTICOSTEROID NOS
     Indication: PAIN
     Route: 030
  2. PREZISTA [Suspect]
     Active Substance: DARUNAVIR ETHANOLATE
     Indication: HIV INFECTION
     Route: 065

REACTIONS (1)
  - Drug interaction [Recovered/Resolved]
